FAERS Safety Report 8175364-6 (Version None)
Quarter: 2012Q1

REPORT INFORMATION
  Report Type: 
  Country: None (occurrence: None)
  Receive Date: 20120229
  Receipt Date: 20120214
  Transmission Date: 20120608
  Serious: Yes (Hospitalization, Other)
  Sender: FDA-Public Use
  Company Number: CHPA2012US003313

PATIENT
  Sex: Female
  Weight: 85 kg

DRUGS (5)
  1. CELEXA [Suspect]
     Dosage: 10 MG, QD
     Route: 048
  2. EXCEDRIN EXTRA STRENGTH TABLETS [Suspect]
     Dosage: 12 DF, ONCE/SINGLE
     Route: 048
     Dates: start: 20111210, end: 20111210
  3. CONCERTA [Suspect]
     Dosage: UNK MG, UNK
     Route: 048
  4. CONCERTA [Suspect]
     Dosage: 108 MG, ONCE/SINGLE
     Route: 048
     Dates: start: 20111210, end: 20111210
  5. MEDROXYPROGESTERONE [Concomitant]
     Dosage: UNK, UNK

REACTIONS (11)
  - SUICIDAL IDEATION [None]
  - PCO2 DECREASED [None]
  - MULTIPLE DRUG OVERDOSE [None]
  - DIZZINESS [None]
  - ANALGESIC DRUG LEVEL INCREASED [None]
  - PO2 INCREASED [None]
  - SUICIDE ATTEMPT [None]
  - ANXIETY [None]
  - BLOOD POTASSIUM DECREASED [None]
  - PALPITATIONS [None]
  - HAEMOGLOBIN DECREASED [None]
